FAERS Safety Report 24388565 (Version 1)
Quarter: 2024Q4

REPORT INFORMATION
  Report Type: Spontaneous
  Country: US (occurrence: US)
  Receive Date: 20241002
  Receipt Date: 20241002
  Transmission Date: 20250114
  Serious: Yes (Other)
  Sender: PFIZER
  Company Number: US-PFIZER INC-202400266265

PATIENT
  Age: 37 Year
  Sex: Female

DRUGS (2)
  1. OXBRYTA [Suspect]
     Active Substance: VOXELOTOR
     Dosage: THREE TABLETS ONCE A DAY
     Dates: start: 2023
  2. OXBRYTA [Suspect]
     Active Substance: VOXELOTOR
     Dosage: TWO TABLETS ONCE A DAY
     Dates: end: 202405

REACTIONS (1)
  - Sickle cell anaemia with crisis [Recovered/Resolved]

NARRATIVE: CASE EVENT DATE: 20240501
